FAERS Safety Report 8546592-2 (Version None)
Quarter: 2012Q3

REPORT INFORMATION
  Report Type: 
  Country: None (occurrence: None)
  Receive Date: 20120727
  Receipt Date: 20120301
  Transmission Date: 20120928
  Serious: No
  Sender: FDA-Public Use
  Company Number: US-ASTRAZENECA-2011SE78952

PATIENT
  Age: 63 Year
  Sex: Female
  Weight: 87.5 kg

DRUGS (23)
  1. CRESTOR [Suspect]
     Route: 048
  2. ESTRADIOL [Concomitant]
  3. CALCIUM GLUCONATE [Concomitant]
  4. MULTI-VITAMINS [Concomitant]
     Dosage: DAILY
  5. SEROQUEL [Suspect]
     Dosage: AT NIGHT
     Route: 048
  6. SEROQUEL [Suspect]
     Dosage: AT NIGHT
     Route: 048
  7. TEGRETOL [Concomitant]
  8. NITROSTAT [Concomitant]
     Indication: CARDIAC DISORDER
  9. SEROQUEL [Suspect]
     Indication: SLEEP DISORDER
     Route: 048
     Dates: start: 20111001
  10. SEROQUEL [Suspect]
     Dosage: AT NIGHT
     Route: 048
  11. LOSARTAN POTASSIUM [Concomitant]
     Indication: BLOOD PRESSURE ABNORMAL
  12. FLAXEED OIL [Concomitant]
     Indication: SUPPLEMENTATION THERAPY
  13. SEROQUEL [Suspect]
     Dosage: AT NIGHT
     Route: 048
  14. METFORMIN HYDROCHLORIDE [Concomitant]
     Dosage: 1 AM,1 NN, 2 PM TID
  15. SEROQUEL [Suspect]
     Indication: BIPOLAR I DISORDER
     Route: 048
     Dates: start: 20111001
  16. SEROQUEL [Suspect]
     Indication: MANIA
     Route: 048
     Dates: start: 20111001
  17. LIPITOR [Concomitant]
  18. SEROQUEL [Suspect]
     Indication: PARANOIA
     Route: 048
     Dates: start: 20111001
  19. SEROQUEL [Suspect]
     Indication: AFFECTIVE DISORDER
     Route: 048
     Dates: start: 20111001
  20. SEROQUEL [Suspect]
     Dosage: AT NIGHT
     Route: 048
  21. FLUNISOLIDE [Concomitant]
     Dosage: DAILY
     Route: 045
  22. PLAVIX [Concomitant]
  23. FISH OIL [Concomitant]
     Indication: SUPPLEMENTATION THERAPY

REACTIONS (9)
  - MUSCLE TWITCHING [None]
  - DRUG DOSE OMISSION [None]
  - ABNORMAL SLEEP-RELATED EVENT [None]
  - OFF LABEL USE [None]
  - MENTAL IMPAIRMENT [None]
  - FEAR [None]
  - PANIC ATTACK [None]
  - NIGHTMARE [None]
  - DROOLING [None]
